FAERS Safety Report 6604423-1 (Version None)
Quarter: 2010Q1

REPORT INFORMATION
  Report Type: 
  Country: None (occurrence: None)
  Receive Date: 20100226
  Receipt Date: 20091109
  Transmission Date: 20100710
  Serious: No
  Sender: FDA-Public Use
  Company Number: A0809615A

PATIENT
  Age: 45 Year
  Sex: Female
  Weight: 42.3 kg

DRUGS (3)
  1. LAMICTAL CD [Suspect]
     Dosage: 500MG AT NIGHT
  2. KLONOPIN [Concomitant]
  3. VALIUM [Concomitant]

REACTIONS (3)
  - ATAXIA [None]
  - DRUG INEFFECTIVE [None]
  - INSOMNIA [None]
